FAERS Safety Report 5788201-1 (Version None)
Quarter: 2008Q2

REPORT INFORMATION
  Report Type: 
  Country: None (occurrence: None)
  Receive Date: 20080620
  Receipt Date: 20080605
  Transmission Date: 20081010
  Serious: Yes (Death, Hospitalization)
  Sender: FDA-Public Use
  Company Number: 2008BI014525

PATIENT
  Age: 58 Year
  Sex: Male

DRUGS (1)
  1. ZEVALIN [Suspect]
     Indication: NON-HODGKIN'S LYMPHOMA UNSPECIFIED HISTOLOGY INDOLENT
     Dosage: ; 1X; IV
     Route: 042
     Dates: start: 20060830, end: 20060906

REACTIONS (28)
  - ABSCESS [None]
  - ACUTE RESPIRATORY DISTRESS SYNDROME [None]
  - ANAEMIA [None]
  - ANXIETY [None]
  - ASCITES [None]
  - ASPARTATE AMINOTRANSFERASE ABNORMAL [None]
  - ASTHENIA [None]
  - ATRIAL FIBRILLATION [None]
  - BLOOD ALKALINE PHOSPHATASE ABNORMAL [None]
  - BLOOD CREATININE ABNORMAL [None]
  - BLOOD LACTATE DEHYDROGENASE ABNORMAL [None]
  - CARDIAC ARREST [None]
  - DIFFUSE LARGE B-CELL LYMPHOMA [None]
  - DISEASE RECURRENCE [None]
  - HYPOCALCAEMIA [None]
  - HYPOTENSION [None]
  - HYPOVOLAEMIA [None]
  - HYPOXIA [None]
  - INTESTINAL OBSTRUCTION [None]
  - INTESTINAL PERFORATION [None]
  - MENINGEAL DISORDER [None]
  - PLEURAL EFFUSION [None]
  - PNEUMONIA ADENOVIRAL [None]
  - PNEUMOPERITONEUM [None]
  - RESPIRATORY FAILURE [None]
  - SEPSIS [None]
  - THROMBOCYTOPENIA [None]
  - WHITE BLOOD CELL COUNT DECREASED [None]
